FAERS Safety Report 13921937 (Version 1)
Quarter: 2017Q3

REPORT INFORMATION
  Report Type: Spontaneous
  Country: US (occurrence: US)
  Receive Date: 20170830
  Receipt Date: 20170830
  Transmission Date: 20171127
  Serious: No
  Sender: FDA-Public Use
  Company Number: US-DRREDDYS-USA/USA/17/0087212

PATIENT
  Age: 63 Year
  Sex: Male
  Weight: 79.37 kg

DRUGS (2)
  1. TIZANIDINE HYDROCHLORIDE. [Suspect]
     Active Substance: TIZANIDINE HYDROCHLORIDE
     Indication: MUSCLE SPASMS
     Route: 048
     Dates: start: 2014
  2. TIZANIDINE HYDROCHLORIDE. [Suspect]
     Active Substance: TIZANIDINE HYDROCHLORIDE
     Route: 048
     Dates: start: 201501

REACTIONS (7)
  - Asthenopia [Recovered/Resolved]
  - Gait disturbance [Recovered/Resolved]
  - Disorganised speech [Recovered/Resolved]
  - Product quality issue [Unknown]
  - Somnolence [Recovered/Resolved]
  - Eye movement disorder [Recovered/Resolved]
  - Dizziness [Recovered/Resolved]

NARRATIVE: CASE EVENT DATE: 20170208
